FAERS Safety Report 9933126 (Version 2)
Quarter: 2015Q1

REPORT INFORMATION
  Report Type: Spontaneous
  Country: US (occurrence: US)
  Receive Date: 20140228
  Receipt Date: 20150211
  Transmission Date: 20150721
  Serious: No
  Sender: FDA-Public Use
  Company Number: US-GLAXOSMITHKLINE-A1050234B

PATIENT

DRUGS (3)
  1. LAMICTAL [Suspect]
     Active Substance: LAMOTRIGINE
     Indication: PARALYSIS
     Route: 065
     Dates: start: 1991, end: 201309
  2. LAMICTAL [Suspect]
     Active Substance: LAMOTRIGINE
     Indication: ILL-DEFINED DISORDER
  3. LORAZEPAM. [Concomitant]
     Active Substance: LORAZEPAM

REACTIONS (4)
  - Energy increased [Recovered/Resolved]
  - Exposure during pregnancy [Unknown]
  - Live birth [Unknown]
  - Sedation [Recovered/Resolved]

NARRATIVE: CASE EVENT DATE: 1999
